FAERS Safety Report 23051875 (Version 1)
Quarter: 2023Q4

REPORT INFORMATION
  Report Type: Spontaneous
  Country: FR (occurrence: FR)
  Receive Date: 20231010
  Receipt Date: 20231010
  Transmission Date: 20240109
  Serious: Yes (Other)
  Sender: FDA-Public Use
  Company Number: FR-009507513-2310FRA002369

PATIENT
  Age: 7 Year

DRUGS (2)
  1. PREVYMIS [Suspect]
     Active Substance: LETERMOVIR
     Indication: Antiviral prophylaxis
     Dosage: BASED ON BODY SURFACE AREA (BSA): BSAX480/1.73 (REDUCED TO BSAX240/1.73 IN CASE OF CSA COMEDICATION)
     Route: 042
  2. PREVYMIS [Suspect]
     Active Substance: LETERMOVIR
     Indication: Antiviral prophylaxis
     Dosage: BASED ON BODY SURFACE AREA (BSA): BSAX480/1.73 (REDUCED TO BSAX240/1.73 IN CASE OF CSA COMEDICATION)
     Route: 048

REACTIONS (4)
  - Cytomegalovirus viraemia [Recovered/Resolved]
  - Drug ineffective [Unknown]
  - Virologic failure [Unknown]
  - Off label use [Unknown]
